FAERS Safety Report 10131289 (Version 1)
Quarter: 2014Q2

REPORT INFORMATION
  Report Type: Spontaneous
  Country: US (occurrence: US)
  Receive Date: 20140428
  Receipt Date: 20140428
  Transmission Date: 20141212
  Serious: No
  Sender: FDA-Public Use
  Company Number: US-GLAXOSMITHKLINE-A1038742A

PATIENT
  Age: 29 Year
  Sex: Male
  Weight: 81.8 kg

DRUGS (7)
  1. ZOFRAN [Suspect]
     Indication: NAUSEA
     Route: 065
  2. HUMIRA [Concomitant]
  3. REGLAN [Concomitant]
  4. IV FLUIDS [Concomitant]
  5. PRILOSEC [Concomitant]
  6. PROZAC [Concomitant]
  7. TRAZODONE [Concomitant]

REACTIONS (1)
  - Drug ineffective [Unknown]
